FAERS Safety Report 16090026 (Version 1)
Quarter: 2019Q1

REPORT INFORMATION
  Report Type: Spontaneous
  Country: US (occurrence: US)
  Receive Date: 20190319
  Receipt Date: 20190319
  Transmission Date: 20190418
  Serious: No
  Sender: FDA-Public Use
  Company Number: US-SA-2019SA071592

PATIENT

DRUGS (15)
  1. DULOXETINE HYDROCHLORIDE. [Suspect]
     Active Substance: DULOXETINE HYDROCHLORIDE
  2. ORENCIA [Suspect]
     Active Substance: ABATACEPT
  3. GABAPENTIN. [Suspect]
     Active Substance: GABAPENTIN
  4. ESCITALOPRAM OXALATE. [Suspect]
     Active Substance: ESCITALOPRAM OXALATE
  5. HYDROCODONE [Suspect]
     Active Substance: HYDROCODONE
  6. TALWIN [Suspect]
     Active Substance: PENTAZOCINE LACTATE
  7. LEFLUNOMIDE. [Suspect]
     Active Substance: LEFLUNOMIDE
  8. MORPHINE SALT NOT SPECIFIED [Suspect]
     Active Substance: MORPHINE
  9. AVANDIA [Suspect]
     Active Substance: ROSIGLITAZONE MALEATE
  10. OFLOXACIN. [Suspect]
     Active Substance: OFLOXACIN
  11. METOPROLOL SUCCINATE. [Suspect]
     Active Substance: METOPROLOL SUCCINATE
  12. BUPROPION HYDROCHLORIDE. [Suspect]
     Active Substance: BUPROPION HYDROCHLORIDE
  13. OLANZAPINE. [Suspect]
     Active Substance: OLANZAPINE
  14. ATORVASTATIN [Suspect]
     Active Substance: ATORVASTATIN
  15. ORAVIG [Suspect]
     Active Substance: MICONAZOLE

REACTIONS (8)
  - Pruritus [Unknown]
  - Dyspnoea [Unknown]
  - Rash [Unknown]
  - Urticaria [Unknown]
  - Myalgia [Unknown]
  - Nausea [Unknown]
  - Vomiting [Unknown]
  - Swelling [Unknown]
